FAERS Safety Report 10070742 (Version 2)
Quarter: 2014Q2

REPORT INFORMATION
  Report Type: Spontaneous
  Country: IT (occurrence: IT)
  Receive Date: 20140410
  Receipt Date: 20140604
  Transmission Date: 20141212
  Serious: Yes (Hospitalization)
  Sender: FDA-Public Use
  Company Number: IT-PFIZER INC-2014097442

PATIENT
  Age: 74 Year
  Sex: Male

DRUGS (7)
  1. TYGACIL [Suspect]
     Indication: ACINETOBACTER INFECTION
     Dosage: 100 MG, DAILY
     Route: 041
     Dates: start: 20120620, end: 20120706
  2. TRIATEC [Suspect]
     Indication: HYPERTENSION
     Dosage: 1 DF, DAILY
     Route: 048
     Dates: start: 20120516, end: 20120706
  3. COLISTIN [Suspect]
     Indication: ACINETOBACTER INFECTION
     Dosage: 3 IU, DAILY
     Route: 041
     Dates: start: 20120620, end: 20120706
  4. NOVONORM [Concomitant]
     Indication: DIABETES MELLITUS
  5. NEXIUM [Concomitant]
  6. TACHIDOL [Concomitant]
  7. CLEXANE [Concomitant]

REACTIONS (1)
  - Renal failure acute [Recovered/Resolved]
